FAERS Safety Report 4341133-8 (Version None)
Quarter: 2004Q2

REPORT INFORMATION
  Report Type: 
  Country: None (occurrence: None)
  Receive Date: 20040413
  Receipt Date: 20040330
  Transmission Date: 20050107
  Serious: No
  Sender: FDA-Public Use
  Company Number: 2004-BP-02540RP

PATIENT
  Age: 67 Year
  Sex: Male

DRUGS (1)
  1. AGGRENOX CAPSULES (ACETYLSALICYLIC ACID, DIPYRIDAMOLE) [Suspect]
     Indication: CEREBROVASCULAR ACCIDENT
     Dosage: (SEE TEXT, 1 CAP BID (STRENGTH  200/25 MG)) PO
     Route: 048
     Dates: start: 20040101

REACTIONS (1)
  - HAEMORRHAGIC DISORDER [None]
